FAERS Safety Report 14353022 (Version 1)
Quarter: 2018Q1

REPORT INFORMATION
  Report Type: Spontaneous
  Country: PT (occurrence: PT)
  Receive Date: 20180104
  Receipt Date: 20180104
  Transmission Date: 20180509
  Serious: Yes (Other)
  Sender: FDA-Public Use
  Company Number: PT-009507513-1712PRT013141

PATIENT
  Age: 40 Year
  Sex: Male

DRUGS (2)
  1. VALDOXAN [Concomitant]
     Active Substance: AGOMELATINE
     Dosage: UNK
     Route: 048
     Dates: start: 201710
  2. REMERON SOLTAB [Suspect]
     Active Substance: MIRTAZAPINE
     Indication: OFF LABEL USE
     Dosage: HALF A TABLET AT NIGHT
     Route: 048
     Dates: start: 201712

REACTIONS (4)
  - Flushing [Not Recovered/Not Resolved]
  - Glossitis [Not Recovered/Not Resolved]
  - Dysuria [Not Recovered/Not Resolved]
  - Tongue discomfort [Not Recovered/Not Resolved]

NARRATIVE: CASE EVENT DATE: 201712
